FAERS Safety Report 9468891 (Version 1)
Quarter: 2013Q3

REPORT INFORMATION
  Report Type: Report from Study
  Country: US (occurrence: US)
  Receive Date: 20130821
  Receipt Date: 20130821
  Transmission Date: 20140515
  Serious: Yes (Life-Threatening, Other)
  Sender: FDA-Public Use
  Company Number: US-TEVA-427276USA

PATIENT
  Age: 1 Year
  Sex: Male
  Weight: 10.9 kg

DRUGS (8)
  1. LESTAURTINIB [Suspect]
     Indication: ACUTE LYMPHOCYTIC LEUKAEMIA
     Dates: start: 20130722, end: 20130725
  2. CYTARABINE [Suspect]
     Indication: ACUTE LYMPHOCYTIC LEUKAEMIA
     Route: 037
     Dates: start: 20130722, end: 20130722
  3. DEXAMETHASONE [Suspect]
     Indication: ACUTE LYMPHOCYTIC LEUKAEMIA
     Dates: start: 20130722, end: 20130726
  4. HYDROCORTISONE [Suspect]
     Indication: ACUTE LYMPHOCYTIC LEUKAEMIA
     Route: 037
     Dates: start: 20130722, end: 20130722
  5. MERCAPTOPURINE [Suspect]
     Indication: ACUTE LYMPHOCYTIC LEUKAEMIA
     Dates: start: 20130722, end: 20130815
  6. METHOTREXATE [Suspect]
     Indication: ACUTE LYMPHOCYTIC LEUKAEMIA
     Route: 037
     Dates: start: 20130722, end: 20130812
  7. METHOTREXATE [Suspect]
     Route: 042
     Dates: start: 20130722, end: 20130812
  8. VINCRISTINE [Suspect]
     Indication: ACUTE LYMPHOCYTIC LEUKAEMIA
     Dates: start: 20130722, end: 20130722

REACTIONS (1)
  - Alanine aminotransferase increased [Not Recovered/Not Resolved]
